FAERS Safety Report 8168889-0 (Version None)
Quarter: 2012Q1

REPORT INFORMATION
  Report Type: 
  Country: None (occurrence: None)
  Receive Date: 20120227
  Receipt Date: 20120214
  Transmission Date: 20120608
  Serious: Yes (Life-Threatening)
  Sender: FDA-Public Use
  Company Number: CA-MYLANLABS-2012S1003596

PATIENT
  Age: 6 Decade
  Sex: Male

DRUGS (14)
  1. MORPHINE [Suspect]
     Dosage: 5-10MG 3-HOURLY AS NEEDED
     Route: 058
  2. ALBUTEROL [Concomitant]
     Indication: PNEUMONIA
  3. MORPHINE [Suspect]
     Indication: PROCEDURAL PAIN
     Dosage: 5-10MG 3-HOURLY AS NEEDED
     Route: 048
  4. THIAMINE HCL [Concomitant]
     Dosage: 100MG DAILY
     Route: 048
  5. FOLIC ACID [Concomitant]
     Dosage: 5MG DAILY
     Route: 048
  6. CIPROFLOXACIN [Interacting]
     Indication: PNEUMONIA ASPIRATION
     Route: 042
  7. LEVOMEPROMAZINE [Interacting]
     Dosage: 10-15MG AT BEDTIME AS NEEDED
     Route: 048
  8. CLINDAMYCIN [Concomitant]
     Indication: PNEUMONIA ASPIRATION
     Route: 042
  9. DALTEPARIN SODIUM [Concomitant]
     Dosage: 5000 UNITS DAILY
     Route: 058
  10. METHADONE HCL [Interacting]
     Indication: DRUG DEPENDENCE
     Route: 048
  11. ACETAMINOPHEN W/ CODEINE [Suspect]
     Indication: PROCEDURAL PAIN
     Dosage: 325MG PARACETAMOL/30MG CODEINE, 1 OR 2 TABLETS 4-HOURLY PRN
     Route: 048
  12. IPRATROPIUM BROMIDE [Concomitant]
     Indication: PNEUMONIA
     Route: 065
  13. MORPHINE [Suspect]
     Dosage: 2MG 1-HOURLY PRN
     Route: 042
  14. CEFUROXIME [Concomitant]
     Indication: PNEUMONIA
     Route: 042

REACTIONS (4)
  - RESPIRATORY DEPRESSION [None]
  - DEPRESSED LEVEL OF CONSCIOUSNESS [None]
  - SOMNOLENCE [None]
  - MIOSIS [None]
